FAERS Safety Report 21970003 (Version 1)
Quarter: 2023Q1

REPORT INFORMATION
  Report Type: Report from Study
  Country: DE (occurrence: DE)
  Receive Date: 20230208
  Receipt Date: 20230208
  Transmission Date: 20230418
  Serious: Yes (Hospitalization, Other)
  Sender: FDA-Public Use
  Company Number: DE-AUROBINDO-AUR-APL-2023-005995

PATIENT
  Age: 16 Year

DRUGS (11)
  1. ARIPIPRAZOLE [Interacting]
     Active Substance: ARIPIPRAZOLE
     Indication: Intellectual disability
     Dosage: UNK
     Route: 065
  2. ARIPIPRAZOLE [Interacting]
     Active Substance: ARIPIPRAZOLE
     Indication: Autism spectrum disorder
  3. ARIPIPRAZOLE [Interacting]
     Active Substance: ARIPIPRAZOLE
     Indication: Microcephaly
  4. QUETIAPINE [Interacting]
     Active Substance: QUETIAPINE
     Indication: Autism spectrum disorder
     Dosage: UNK
     Route: 065
  5. QUETIAPINE [Interacting]
     Active Substance: QUETIAPINE
     Indication: Intellectual disability
  6. QUETIAPINE [Interacting]
     Active Substance: QUETIAPINE
     Indication: Microcephaly
  7. LORAZEPAM [Interacting]
     Active Substance: LORAZEPAM
     Indication: Autism spectrum disorder
     Dosage: UNK
     Route: 065
  8. MELPERONE [Interacting]
     Active Substance: MELPERONE
     Indication: Intellectual disability
     Dosage: UNK
     Route: 065
  9. MELPERONE [Interacting]
     Active Substance: MELPERONE
     Indication: Autism spectrum disorder
  10. MELPERONE [Interacting]
     Active Substance: MELPERONE
     Indication: Microcephaly
  11. MELATONIN [Interacting]
     Active Substance: MELATONIN
     Indication: Autism spectrum disorder
     Dosage: UNK
     Route: 065

REACTIONS (12)
  - Akinesia [Unknown]
  - Gaze palsy [Unknown]
  - Akathisia [Unknown]
  - Myoclonus [Unknown]
  - Extrapyramidal disorder [Unknown]
  - Tongue spasm [Unknown]
  - Chills [Unknown]
  - Tremor [Unknown]
  - Gait disturbance [Unknown]
  - Drug interaction [Unknown]
  - Off label use [Unknown]
  - Medication error [Unknown]
